FAERS Safety Report 12805980 (Version 3)
Quarter: 2016Q4

REPORT INFORMATION
  Report Type: Spontaneous
  Country: US (occurrence: US)
  Receive Date: 20161004
  Receipt Date: 20161209
  Transmission Date: 20170207
  Serious: No
  Sender: FDA-Public Use
  Company Number: US-PFIZER INC-2016460733

PATIENT
  Age: 49 Year
  Sex: Male

DRUGS (9)
  1. TIZANIDINE. [Concomitant]
     Active Substance: TIZANIDINE
     Dosage: (2MG IN THE MORNING, 2 MG IN THE AFTERNOON)
  2. ARICEPT [Concomitant]
     Active Substance: DONEPEZIL HYDROCHLORIDE
     Dosage: ^10^
  3. SERTRALINE [Concomitant]
     Active Substance: SERTRALINE HYDROCHLORIDE
     Dosage: 25 MG, DAILY
  4. TIZANIDINE. [Concomitant]
     Active Substance: TIZANIDINE
     Dosage: 8 MG, 1X/DAY (AT NIGHT TIME)
  5. LYRICA [Concomitant]
     Active Substance: PREGABALIN
     Dosage: 150 MG, 2X/DAY
  6. OXYBUTYNIN [Concomitant]
     Active Substance: OXYBUTYNIN
     Indication: NEUROGENIC BLADDER
  7. BACLOFEN. [Concomitant]
     Active Substance: BACLOFEN
  8. GABAPENTIN. [Suspect]
     Active Substance: GABAPENTIN
     Indication: MULTIPLE SCLEROSIS
     Dosage: 300 MG, 3X/DAY
  9. SOLU-MEDROL [Concomitant]
     Active Substance: METHYLPREDNISOLONE SODIUM SUCCINATE
     Dosage: UNK UNK, WEEKLY
     Route: 042

REACTIONS (1)
  - Drug ineffective for unapproved indication [Unknown]
